FAERS Safety Report 9574927 (Version 2)
Quarter: 2013Q4

REPORT INFORMATION
  Report Type: Spontaneous
  Country: CN (occurrence: CN)
  Receive Date: 20131001
  Receipt Date: 20131007
  Transmission Date: 20140711
  Serious: Yes (Hospitalization)
  Sender: FDA-Public Use
  Company Number: CN-PFIZER INC-2013274658

PATIENT
  Age: 54 Year
  Sex: Female
  Weight: 72 kg

DRUGS (1)
  1. GLUCOTROL XL [Suspect]
     Indication: DIABETES MELLITUS
     Dosage: 5 MG, ONCE DAILY
     Route: 048
     Dates: start: 20120205, end: 20120205

REACTIONS (3)
  - Prurigo [Recovering/Resolving]
  - Erythema of eyelid [Unknown]
  - Eyelid oedema [Unknown]
